FAERS Safety Report 17442456 (Version 1)
Quarter: 2020Q1

REPORT INFORMATION
  Report Type: Spontaneous
  Country: US (occurrence: US)
  Receive Date: 20200220
  Receipt Date: 20200220
  Transmission Date: 20200409
  Serious: No
  Sender: FDA-Public Use
  Company Number: US-NEUROCRINE BIOSCIENCES INC.-2020NBI00486

PATIENT
  Sex: Female

DRUGS (4)
  1. ZYPREXA [Concomitant]
     Active Substance: OLANZAPINE
  2. INGREZZA [Suspect]
     Active Substance: VALBENAZINE
     Indication: TARDIVE DYSKINESIA
     Dates: start: 2019, end: 2019
  3. PROZAC [Concomitant]
     Active Substance: FLUOXETINE HYDROCHLORIDE
  4. INGREZZA [Suspect]
     Active Substance: VALBENAZINE
     Dates: start: 201909, end: 20200203

REACTIONS (2)
  - Drooling [Recovering/Resolving]
  - Gait disturbance [Recovering/Resolving]

NARRATIVE: CASE EVENT DATE: 202002
